FAERS Safety Report 14693153 (Version 1)
Quarter: 2018Q1

REPORT INFORMATION
  Report Type: Spontaneous
  Country: CA (occurrence: CA)
  Receive Date: 20180329
  Receipt Date: 20180329
  Transmission Date: 20180509
  Serious: Yes (Other)
  Sender: FDA-Public Use
  Company Number: CA-ROCHE-2029157

PATIENT
  Age: 29 Year
  Sex: Female

DRUGS (2)
  1. XOLAIR [Suspect]
     Active Substance: OMALIZUMAB
     Dosage: UNK
     Route: 058
     Dates: start: 20171115
  2. XOLAIR [Suspect]
     Active Substance: OMALIZUMAB
     Indication: ASTHMA
     Route: 058
     Dates: start: 20130807

REACTIONS (4)
  - Heart rate increased [Unknown]
  - Lower respiratory tract infection [Unknown]
  - Productive cough [Unknown]
  - Speech disorder [Unknown]

NARRATIVE: CASE EVENT DATE: 20171115
